FAERS Safety Report 23788701 (Version 1)
Quarter: 2024Q2

REPORT INFORMATION
  Report Type: Report from Study
  Country: IT (occurrence: IT)
  Receive Date: 20240426
  Receipt Date: 20240426
  Transmission Date: 20240716
  Serious: Yes (Hospitalization, Disabling)
  Sender: FDA-Public Use
  Company Number: IT-RIGEL PHARMACEUTICALS, INC.-2024FOS000501

PATIENT
  Age: 62 Year

DRUGS (1)
  1. FOSTAMATINIB DISODIUM [Suspect]
     Active Substance: FOSTAMATINIB DISODIUM
     Indication: Immune thrombocytopenia
     Dosage: 200 UNK, QD
     Route: 048
     Dates: start: 20230310, end: 20230823

REACTIONS (3)
  - Cerebrovascular accident [Recovered/Resolved with Sequelae]
  - Hemiplegia [Recovered/Resolved with Sequelae]
  - Dysarthria [Recovered/Resolved with Sequelae]

NARRATIVE: CASE EVENT DATE: 20230419
